FAERS Safety Report 20770338 (Version 1)
Quarter: 2022Q2

REPORT INFORMATION
  Report Type: Report from Study
  Country: US (occurrence: US)
  Receive Date: 20220429
  Receipt Date: 20220429
  Transmission Date: 20220720
  Serious: No
  Sender: FDA-Public Use
  Company Number: US-TAKEDA-2021TUS035059

PATIENT

DRUGS (2)
  1. PONATINIB [Suspect]
     Active Substance: PONATINIB
     Indication: Acute lymphocytic leukaemia recurrent
     Dosage: 30 MILLIGRAM, QD
     Route: 048
  2. JAKAFI [Concomitant]
     Active Substance: RUXOLITINIB
     Dosage: UNK
     Route: 065

REACTIONS (7)
  - Oral herpes [Unknown]
  - Dysphagia [Unknown]
  - Influenza like illness [Recovered/Resolved]
  - Acne [Unknown]
  - Pyrexia [Recovered/Resolved]
  - Product size issue [Unknown]
  - Product dose omission issue [Unknown]
